FAERS Safety Report 10748429 (Version 1)
Quarter: 2015Q1

REPORT INFORMATION
  Report Type: Spontaneous
  Country: US (occurrence: US)
  Receive Date: 20150129
  Receipt Date: 20150129
  Transmission Date: 20150721
  Serious: Yes (Other)
  Sender: FDA-Public Use
  Company Number: US-PFIZER INC-2014356295

PATIENT
  Sex: Female
  Weight: 86 kg

DRUGS (20)
  1. METOPROLOL [Concomitant]
     Active Substance: METOPROLOL
     Indication: HYPERTENSION
     Dosage: 100 MG, 1X/DAY
     Route: 048
  2. NEXIUM [Concomitant]
     Active Substance: ESOMEPRAZOLE MAGNESIUM
     Indication: DYSPEPSIA
     Dosage: 40 MG, DAILY
     Route: 048
  3. CALCIUM ACETATE. [Concomitant]
     Active Substance: CALCIUM ACETATE
     Indication: RENAL DISORDER
     Dosage: 2001 MG, WITH EACH MEAL
     Route: 048
  4. NOVOLOG [Concomitant]
     Active Substance: INSULIN ASPART
     Indication: DIABETES MELLITUS
     Dosage: 12 IU, BEFORE EACH MEALS
     Route: 058
  5. LANTUS [Concomitant]
     Active Substance: INSULIN GLARGINE
     Indication: DIABETES MELLITUS
     Dosage: 30 IU AT NIGHT, DAILY
     Route: 058
  6. CRESTOR [Concomitant]
     Active Substance: ROSUVASTATIN CALCIUM
     Indication: BLOOD CHOLESTEROL INCREASED
     Dosage: 10 MG, 1X/DAY
     Route: 048
  7. GABAPENTIN. [Concomitant]
     Active Substance: GABAPENTIN
     Indication: MUSCLE SPASMS
     Dosage: 200 MG, 2X/DAY
     Route: 048
  8. LIDOCAINE. [Concomitant]
     Active Substance: LIDOCAINE
     Dosage: 2.5, CREAM, BEFORE DIALYSIS
  9. REVATIO [Suspect]
     Active Substance: SILDENAFIL CITRATE
     Indication: BLOOD PRESSURE
     Dosage: 20 MG, 3X/DAY
     Route: 048
  10. REVATIO [Suspect]
     Active Substance: SILDENAFIL CITRATE
     Indication: CARDIAC DISORDER
  11. ASPIRIN. [Concomitant]
     Active Substance: ASPIRIN
     Indication: ANTICOAGULANT THERAPY
     Dosage: 81 MG, 1X/DAY
     Route: 048
  12. ONDANSETRON [Concomitant]
     Active Substance: ONDANSETRON
     Indication: NAUSEA
     Dosage: 4 MG, 1-2 TABLETS EVERY 4-6 HOURS, AS NEEDED
     Route: 048
  13. ONDANSETRON [Concomitant]
     Active Substance: ONDANSETRON
     Indication: VOMITING
  14. CITALOPRAM [Concomitant]
     Active Substance: CITALOPRAM HYDROBROMIDE
     Indication: DEPRESSION
     Dosage: 40 MG, 1X/DAY
     Route: 048
  15. GLIPIZIDE. [Concomitant]
     Active Substance: GLIPIZIDE
     Indication: DIABETES MELLITUS
     Dosage: 5 MG, 2X/DAY
     Route: 048
  16. MEGA RED KRILL OIL [Concomitant]
     Indication: PROPHYLAXIS
     Dosage: 1 DF, DAILY
  17. LEVOTHYROXINE [Concomitant]
     Active Substance: LEVOTHYROXINE
     Indication: THYROID DISORDER
     Dosage: 112 ?G, 1X/DAY
     Route: 048
  18. TRAMADOL [Concomitant]
     Active Substance: TRAMADOL
     Indication: PAIN
     Dosage: 50 MG, EVERY 8 HOURS, AS NEEDED
     Route: 048
  19. VITAMIN D3 [Concomitant]
     Active Substance: CHOLECALCIFEROL
     Indication: VITAMIN SUPPLEMENTATION
     Dosage: 1 DF, 1X/DAY
  20. FUROSEMIDE. [Concomitant]
     Active Substance: FUROSEMIDE
     Indication: PERIPHERAL SWELLING
     Dosage: 80 MG, 2X/DAY (MORNING AND AT NOON)
     Route: 048

REACTIONS (3)
  - Malaise [Not Recovered/Not Resolved]
  - Renal failure [Not Recovered/Not Resolved]
  - Product use issue [Not Recovered/Not Resolved]

NARRATIVE: CASE EVENT DATE: 201204
